FAERS Safety Report 11671866 (Version 1)
Quarter: 2015Q4

REPORT INFORMATION
  Report Type: Report from Study
  Country: US (occurrence: US)
  Receive Date: 20151028
  Receipt Date: 20151028
  Transmission Date: 20160304
  Serious: No
  Sender: FDA-Public Use
  Company Number: PHEH2015US003636

PATIENT
  Sex: Female

DRUGS (1)
  1. MYFORTIC [Suspect]
     Active Substance: MYCOPHENOLATE SODIUM
     Indication: PANCREAS ISLET CELL TRANSPLANT
     Dosage: 540 MG, BID
     Route: 048
     Dates: start: 20120112

REACTIONS (1)
  - Off label use [Unknown]
